FAERS Safety Report 16923999 (Version 4)
Quarter: 2019Q4

REPORT INFORMATION
  Report Type: Spontaneous
  Country: TR (occurrence: TR)
  Receive Date: 20191016
  Receipt Date: 20191212
  Transmission Date: 20200122
  Serious: Yes (Other)
  Sender: FDA-Public Use
  Company Number: NVSC2019TR002802

PATIENT
  Sex: Female

DRUGS (1)
  1. TOBI [Suspect]
     Active Substance: TOBRAMYCIN
     Indication: CYSTIC FIBROSIS
     Dosage: UNK
     Route: 065

REACTIONS (5)
  - Disease recurrence [Unknown]
  - Sputum culture positive [Unknown]
  - Drug ineffective [Unknown]
  - Cystic fibrosis [Unknown]
  - Bacterial test positive [Unknown]
